FAERS Safety Report 13700836 (Version 1)
Quarter: 2017Q2

REPORT INFORMATION
  Report Type: Spontaneous
  Country: US (occurrence: US)
  Receive Date: 20170629
  Receipt Date: 20170629
  Transmission Date: 20170830
  Serious: Yes (Hospitalization, Other)
  Sender: FDA-Public Use
  Company Number: US-PFIZER INC-2017281655

PATIENT
  Age: 62 Year
  Sex: Male
  Weight: 122.45 kg

DRUGS (2)
  1. LYRICA [Suspect]
     Active Substance: PREGABALIN
     Indication: FOCAL DYSCOGNITIVE SEIZURES
     Dosage: 300 MG, UNK
     Route: 048
     Dates: start: 2007
  2. TRILEPTAL [Concomitant]
     Active Substance: OXCARBAZEPINE
     Indication: SEIZURE
     Dosage: 600 MG, 2X/DAY

REACTIONS (2)
  - Acute kidney injury [Recovering/Resolving]
  - Muscular weakness [Recovering/Resolving]

NARRATIVE: CASE EVENT DATE: 20160909
